FAERS Safety Report 16196300 (Version 1)
Quarter: 2019Q2

REPORT INFORMATION
  Report Type: Spontaneous
  Country: CN (occurrence: CN)
  Receive Date: 20190415
  Receipt Date: 20190415
  Transmission Date: 20190711
  Serious: Yes (Other)
  Sender: FDA-Public Use
  Company Number: CN-ROCHE-2294916

PATIENT
  Age: 60 Year
  Sex: Male
  Weight: 75 kg

DRUGS (11)
  1. FLUOROURACIL. [Concomitant]
     Active Substance: FLUOROURACIL
     Route: 065
     Dates: start: 20140529
  2. XELODA [Suspect]
     Active Substance: CAPECITABINE
     Indication: RENAL CELL CARCINOMA
     Dosage: MORNING AT 1500MG, EVENING AT 2000MG DAY1-14
     Route: 048
     Dates: start: 20161111
  3. XELODA [Suspect]
     Active Substance: CAPECITABINE
     Dosage: MORNING AT 1500MG, EVENING AT 2000MG DAY1-14
     Route: 020
     Dates: start: 20170210
  4. XELODA [Suspect]
     Active Substance: CAPECITABINE
     Dosage: FROM DAY2 TO DAY14 (1052MG/M2)
     Route: 048
     Dates: start: 20170303
  5. CISPLATIN. [Concomitant]
     Active Substance: CISPLATIN
     Dosage: 63 MG/M2 FROM DAY1 TO DAY3
     Route: 065
     Dates: start: 20170210
  6. FOLINIC ACID [Concomitant]
     Active Substance: LEUCOVORIN
     Route: 065
     Dates: start: 20140529
  7. RALTITREXED [Concomitant]
     Active Substance: RALTITREXED
     Indication: RENAL CELL CARCINOMA
     Dosage: 3MG/M2 DAY1
     Route: 041
     Dates: start: 20180125
  8. OXALIPLATIN. [Concomitant]
     Active Substance: OXALIPLATIN
     Route: 065
     Dates: start: 20140529
  9. XELODA [Suspect]
     Active Substance: CAPECITABINE
     Dosage: (789MG/M2) FROM DAY1 TO DAY14 Q21D
     Route: 021
     Dates: start: 20170614
  10. CISPLATIN. [Concomitant]
     Active Substance: CISPLATIN
     Indication: RENAL CELL CARCINOMA
     Dosage: 63 MG/M2 FROM DAY1 TO DAY3
     Route: 041
     Dates: start: 20161111
  11. CISPLATIN. [Concomitant]
     Active Substance: CISPLATIN
     Dosage: 63MG/M2 DAY1
     Route: 065
     Dates: start: 20170303

REACTIONS (15)
  - Gallbladder enlargement [Unknown]
  - Biliary dilatation [Unknown]
  - Anastomotic ulcer [Unknown]
  - Gastric ulcer [Unknown]
  - Pneumatosis [Unknown]
  - Intestinal anastomosis [Unknown]
  - Jaundice [Recovering/Resolving]
  - Polyp [Unknown]
  - Oesophagitis [Unknown]
  - Impaired gastric emptying [Unknown]
  - Gastrointestinal inflammation [Unknown]
  - Bile duct obstruction [Unknown]
  - Pulmonary embolism [Unknown]
  - Haematemesis [Unknown]
  - Anastomotic haemorrhage [Unknown]
